FAERS Safety Report 8058359-2 (Version None)
Quarter: 2012Q1

REPORT INFORMATION
  Report Type: 
  Country: None (occurrence: None)
  Receive Date: 20120120
  Receipt Date: 20120110
  Transmission Date: 20120608
  Serious: Yes (Hospitalization, Other)
  Sender: FDA-Public Use
  Company Number: US-ELI_LILLY_AND_COMPANY-US201201003403

PATIENT
  Sex: Female
  Weight: 66 kg

DRUGS (6)
  1. ZYPREXA [Suspect]
  2. CHANTIX [Concomitant]
  3. LEXAPRO [Concomitant]
     Indication: DEPRESSION
     Dosage: 20 MG, QD
     Route: 048
     Dates: start: 20071219
  4. SEROQUEL [Concomitant]
     Indication: BIPOLAR I DISORDER
     Dosage: 400 MG, QD
     Dates: start: 20110812
  5. ABILIFY [Concomitant]
     Dosage: 15 MG, UNK
  6. ASENAPINE [Concomitant]
     Dosage: UNK
     Dates: start: 20111115

REACTIONS (6)
  - PSYCHOTIC DISORDER [None]
  - PAIN [None]
  - LIVER DISORDER [None]
  - WEIGHT INCREASED [None]
  - ALANINE AMINOTRANSFERASE INCREASED [None]
  - ASPARTATE AMINOTRANSFERASE INCREASED [None]
